FAERS Safety Report 6712401-7 (Version None)
Quarter: 2010Q2

REPORT INFORMATION
  Report Type: 
  Country: None (occurrence: None)
  Receive Date: 20100505
  Receipt Date: 20100427
  Transmission Date: 20101027
  Serious: Yes (Hospitalization, Other)
  Sender: FDA-Public Use
  Company Number: US-AMGEN-QUU405755

PATIENT
  Sex: Female

DRUGS (32)
  1. NPLATE [Suspect]
     Indication: IDIOPATHIC THROMBOCYTOPENIC PURPURA
     Route: 058
     Dates: start: 20090812, end: 20090903
  2. CORTICOSTEROIDS [Concomitant]
  3. RITUXAN [Concomitant]
     Dates: start: 20081008
  4. CYCLOPHOSPHAMIDE [Concomitant]
  5. IMMU-G [Concomitant]
  6. VINCRISTINE [Concomitant]
  7. IMURAN [Concomitant]
  8. DANAZOL [Concomitant]
  9. CYCLOSPORINE [Concomitant]
  10. SYNTHROID [Concomitant]
     Route: 048
  11. POTASSIUM CHLORIDE [Concomitant]
  12. LISINOPRIL [Concomitant]
  13. METHYLPREDNISOLONE [Concomitant]
  14. VITAMIN D [Concomitant]
  15. FERROUS GLUCONATE [Concomitant]
  16. NORVASC [Concomitant]
  17. HYDROCHLOROTHIAZIDE [Concomitant]
     Route: 048
  18. PROTONIX [Concomitant]
  19. PROCHLORPERAZINE MALEATE [Concomitant]
  20. ZOFRAN [Concomitant]
  21. VALTREX [Concomitant]
  22. MIRAPEX [Concomitant]
  23. TYLENOL W/ CODEINE NO. 3 [Concomitant]
  24. VITAMIN B-12 [Concomitant]
  25. BONIVA [Concomitant]
  26. COSOPT [Concomitant]
     Route: 047
  27. PRED FORTE [Concomitant]
     Route: 047
  28. VICODIN [Concomitant]
  29. PERCOCET [Concomitant]
  30. PEPCID [Concomitant]
  31. SODIUM CHLORIDE [Concomitant]
  32. XENICAL [Concomitant]
     Route: 048

REACTIONS (6)
  - CHOLECYSTITIS INFECTIVE [None]
  - CHOLELITHIASIS [None]
  - DRUG INEFFECTIVE [None]
  - GASTROINTESTINAL HAEMORRHAGE [None]
  - HAEMOGLOBIN DECREASED [None]
  - PROCEDURAL PAIN [None]
